FAERS Safety Report 9171437 (Version 4)
Quarter: 2013Q2

REPORT INFORMATION
  Report Type: Spontaneous
  Country: JP (occurrence: JP)
  Receive Date: 20130319
  Receipt Date: 20130513
  Transmission Date: 20140414
  Serious: Yes (Death, Life-Threatening, Hospitalization)
  Sender: FDA-Public Use
  Company Number: JP-B.I. PHARMACEUTICALS,INC./RIDGEFIELD-2013-BI-07404NB

PATIENT
  Age: 88 Year
  Sex: Male
  Weight: 55 kg

DRUGS (11)
  1. PRAZAXA [Suspect]
     Indication: ATRIAL FIBRILLATION
     Dosage: 220 MG
     Route: 048
     Dates: start: 20130216, end: 20130314
  2. SIGMART [Concomitant]
     Indication: CARDIAC FAILURE CHRONIC
     Dosage: 15 MG
     Route: 048
     Dates: start: 20100409
  3. ADALAT [Concomitant]
     Indication: HYPERTENSION
     Dosage: 80 MG
     Route: 048
     Dates: start: 20110222
  4. MYSLEE [Concomitant]
     Indication: INSOMNIA
     Dosage: 10 MG
     Route: 048
     Dates: start: 20110711
  5. FEROTYM [Concomitant]
     Indication: IRON DEFICIENCY ANAEMIA
     Dosage: 50 MG
     Route: 048
     Dates: start: 20110711
  6. RASILEZ [Concomitant]
     Indication: HYPERTENSION
     Dosage: 150 MG
     Route: 048
     Dates: start: 20110711
  7. SAMSCA [Concomitant]
     Indication: CARDIAC FAILURE CHRONIC
     Dosage: 15 MG
     Route: 048
     Dates: start: 20120903
  8. LASIX [Concomitant]
     Indication: CARDIAC FAILURE CHRONIC
     Dosage: 40 MG
     Route: 048
     Dates: start: 20120903
  9. THYRADIN S [Concomitant]
     Indication: HYPOTHYROIDISM
     Dosage: 150 MCG
     Route: 048
     Dates: start: 20120903
  10. FEBURIC [Concomitant]
     Indication: HYPERURICAEMIA
     Dosage: 10 MCG
     Route: 048
     Dates: start: 20120903
  11. LASIX [Concomitant]
     Indication: CARDIAC FAILURE CHRONIC
     Dosage: 80 MG
     Route: 042
     Dates: start: 20130225, end: 20130225

REACTIONS (4)
  - Respiratory failure [Fatal]
  - Interstitial lung disease [Fatal]
  - Pulmonary haemorrhage [Fatal]
  - Back pain [Unknown]
